FAERS Safety Report 5146003-3 (Version None)
Quarter: 2006Q4

REPORT INFORMATION
  Report Type: 
  Country: None (occurrence: None)
  Receive Date: 20061108
  Receipt Date: 20061030
  Transmission Date: 20070319
  Serious: Yes (Other)
  Sender: FDA-Public Use
  Company Number: GB-GLAXOSMITHKLINE-B0444937A

PATIENT
  Sex: Female
  Weight: 65 kg

DRUGS (2)
  1. NICOTINE [Suspect]
     Indication: SMOKING CESSATION THERAPY
     Route: 062
     Dates: start: 20061016, end: 20061017
  2. MEFENAMIC ACID [Concomitant]
     Dates: end: 20060929

REACTIONS (1)
  - PARAESTHESIA [None]
